FAERS Safety Report 7166912-3 (Version None)
Quarter: 2010Q4

REPORT INFORMATION
  Report Type: 
  Country: None (occurrence: None)
  Receive Date: 20101202
  Receipt Date: 20101117
  Transmission Date: 20110411
  Serious: Yes (Hospitalization)
  Sender: FDA-Public Use
  Company Number: 022245

PATIENT
  Sex: Male

DRUGS (3)
  1. CIMZIA [Suspect]
     Indication: CROHN'S DISEASE
     Dosage: (400 MG  1X/MONTH SUBCUTANEOUS), (200 MG 1X/2 WEEKS SUBCUTANEOUS)
     Route: 058
     Dates: start: 20090901
  2. METHOTREXATE [Suspect]
  3. AMBIEN [Suspect]
     Dates: start: 20101112

REACTIONS (10)
  - AMNESIA [None]
  - BLOOD PRESSURE INCREASED [None]
  - ERYTHEMA [None]
  - HEART RATE DECREASED [None]
  - MUSCULAR WEAKNESS [None]
  - RHEUMATOID ARTHRITIS [None]
  - SKIN LACERATION [None]
  - SOMNAMBULISM [None]
  - UPPER RESPIRATORY TRACT INFECTION [None]
  - VOMITING [None]
